FAERS Safety Report 14715695 (Version 4)
Quarter: 2019Q2

REPORT INFORMATION
  Report Type: Report from Study
  Country: US (occurrence: US)
  Receive Date: 20180404
  Receipt Date: 20190508
  Transmission Date: 20190711
  Serious: Yes (Hospitalization)
  Sender: FDA-Public Use
  Company Number: US-ACTELION-A-NJ2018-170081

PATIENT
  Age: 51 Year
  Sex: Female

DRUGS (18)
  1. MONTELUKAST [Concomitant]
     Active Substance: MONTELUKAST SODIUM
     Dosage: 10 MG, UNK
     Dates: start: 20180518
  2. CARAFATE [Concomitant]
     Active Substance: SUCRALFATE
  3. LEVALBUTEROL. [Concomitant]
     Active Substance: LEVALBUTEROL
  4. VITAMIN D NOS [Concomitant]
     Active Substance: VITAMIN D NOS
  5. MAGNESIUM OXIDE. [Concomitant]
     Active Substance: MAGNESIUM OXIDE
  6. CYANOCOBALAMIN. [Concomitant]
     Active Substance: CYANOCOBALAMIN
  7. PANTOPRAZOLE [Concomitant]
     Active Substance: PANTOPRAZOLE
     Dosage: 40 MG, UNK
     Dates: start: 20171117
  8. DICLOFENAC [Concomitant]
     Active Substance: DICLOFENAC
  9. TRACLEER [Suspect]
     Active Substance: BOSENTAN
     Indication: PULMONARY ARTERIAL HYPERTENSION
     Dosage: 62.5 MG, BID
     Route: 048
     Dates: start: 20120706, end: 201903
  10. NIFEDIPINE. [Concomitant]
     Active Substance: NIFEDIPINE
  11. REPLESTA [Concomitant]
     Active Substance: CHOLECALCIFEROL
  12. KLOR-CON [Concomitant]
     Active Substance: POTASSIUM CHLORIDE
     Dosage: 20 MEQ, UNK
     Dates: start: 20180601
  13. FLOVENT [Concomitant]
     Active Substance: FLUTICASONE PROPIONATE
  14. POTASSIUM CHLORATE [Concomitant]
     Active Substance: POTASSIUM CHLORATE
  15. HYDROCODONE BITARTRATE AND ACETAMINOPHEN [Concomitant]
     Active Substance: ACETAMINOPHEN\HYDROCODONE BITARTRATE
  16. NITROFURANTIN [Concomitant]
     Active Substance: NITROFURANTOIN
  17. CIPROFLOXACIN. [Concomitant]
     Active Substance: CIPROFLOXACIN
  18. AMOXICILLIN + CLAV. POTASSIUM [Concomitant]
     Active Substance: AMOXICILLIN\CLAVULANATE POTASSIUM

REACTIONS (3)
  - Influenza [Not Recovered/Not Resolved]
  - Blood potassium decreased [Unknown]
  - Pneumonia [Recovered/Resolved]

NARRATIVE: CASE EVENT DATE: 201803
